FAERS Safety Report 18354790 (Version 2)
Quarter: 2021Q1

REPORT INFORMATION
  Report Type: Spontaneous
  Country: US (occurrence: US)
  Receive Date: 20201007
  Receipt Date: 20210201
  Transmission Date: 20210419
  Serious: No
  Sender: FDA-Public Use
  Company Number: US-SA-2020SA274626

PATIENT
  Age: 89 Year
  Sex: Female

DRUGS (3)
  1. ALLEGRA?D 24 HOUR [Suspect]
     Active Substance: FEXOFENADINE HYDROCHLORIDE\PSEUDOEPHEDRINE HYDROCHLORIDE
     Indication: RHINORRHOEA
  2. MUCINEX [Concomitant]
     Active Substance: GUAIFENESIN
  3. ALLEGRA?D 24 HOUR [Suspect]
     Active Substance: FEXOFENADINE HYDROCHLORIDE\PSEUDOEPHEDRINE HYDROCHLORIDE
     Indication: SINUS HEADACHE
     Dosage: 180 MG, QD
     Route: 065

REACTIONS (3)
  - Product use complaint [Unknown]
  - Vertigo [Unknown]
  - Insomnia [Unknown]
